FAERS Safety Report 5280991-X (Version None)
Quarter: 2007Q1

REPORT INFORMATION
  Report Type: 
  Country: None (occurrence: None)
  Receive Date: 20061229
  Receipt Date: 20061004
  Transmission Date: 20070707
  Serious: No
  Sender: FDA-Public Use
  Company Number: 2006UW19310

PATIENT

DRUGS (2)
  1. CRESTOR [Suspect]
     Dosage: 10 MG QD PO
     Route: 048
  2. CRESTOR [Suspect]
     Dosage: 5 MG QD PO
     Route: 048

REACTIONS (1)
  - HEPATITIS [None]
